FAERS Safety Report 21717718 (Version 1)
Quarter: 2022Q4

REPORT INFORMATION
  Report Type: Spontaneous
  Country: GB (occurrence: GB)
  Receive Date: 20221212
  Receipt Date: 20221212
  Transmission Date: 20230113
  Serious: Yes (Disabling, Other)
  Sender: FDA-Public Use
  Company Number: None

PATIENT
  Sex: Male
  Weight: 88 kg

DRUGS (2)
  1. MESALAMINE [Suspect]
     Active Substance: MESALAMINE
     Indication: Ill-defined disorder
     Dosage: UNK
     Dates: start: 20221206
  2. BUDESONIDE [Concomitant]
     Active Substance: BUDESONIDE
     Indication: Ill-defined disorder
     Dosage: USE ONCE DAILY FOR 6 WEEKS UNTIL REVIEW
     Dates: start: 20221206

REACTIONS (2)
  - Instillation site swelling [Not Recovered/Not Resolved]
  - Anorectal discomfort [Not Recovered/Not Resolved]

NARRATIVE: CASE EVENT DATE: 20221206
